FAERS Safety Report 16474424 (Version 1)
Quarter: 2019Q2

REPORT INFORMATION
  Report Type: Spontaneous
  Country: CN (occurrence: CN)
  Receive Date: 20190625
  Receipt Date: 20190625
  Transmission Date: 20190711
  Serious: Yes (Other)
  Sender: FDA-Public Use
  Company Number: CN-PFIZER INC-2019265750

PATIENT
  Age: 22 Year
  Sex: Female

DRUGS (9)
  1. TRETINOIN. [Suspect]
     Active Substance: TRETINOIN
     Indication: ACUTE MYELOID LEUKAEMIA
     Dosage: 30 MG, CYCLIC (D1-28)
     Dates: start: 20161101
  2. DAUNORUBICIN [Suspect]
     Active Substance: DAUNORUBICIN
     Dosage: 60 MG, CYCLIC (D1-3)
     Dates: start: 20161213
  3. METHOTREXATE. [Concomitant]
     Active Substance: METHOTREXATE
     Dosage: 5 MG, UNK
     Dates: start: 20161213
  4. CYTARABINE. [Suspect]
     Active Substance: CYTARABINE
     Dosage: 150 MG, CYCLIC (D1-7)
     Dates: start: 20161213
  5. DAUNORUBICIN [Suspect]
     Active Substance: DAUNORUBICIN
     Indication: ACUTE MYELOID LEUKAEMIA
     Dosage: 60 MG, CYCLIC (D1-3)
     Dates: start: 20161101
  6. DEXAMETHASONE. [Concomitant]
     Active Substance: DEXAMETHASONE
     Dosage: 5 MG, UNK
     Route: 037
     Dates: start: 20161213
  7. ARSENIC TRIOXIDE. [Suspect]
     Active Substance: ARSENIC TRIOXIDE
     Indication: ACUTE MYELOID LEUKAEMIA
     Dosage: 10 MG, CYCLIC (D1-28)
     Dates: start: 20161101
  8. CYTARABINE. [Suspect]
     Active Substance: CYTARABINE
     Indication: ACUTE MYELOID LEUKAEMIA
     Dosage: 200 MG, CYCLIC (D 1-4)
     Dates: start: 20161101
  9. CYTOSINE ARABINOSIDE [Concomitant]
     Active Substance: CYTARABINE
     Dosage: 50 MG, UNK
     Dates: start: 20161213

REACTIONS (1)
  - Choroidal neovascularisation [Recovered/Resolved]

NARRATIVE: CASE EVENT DATE: 2016
